FAERS Safety Report 10026790 (Version 1)
Quarter: 2014Q1

REPORT INFORMATION
  Report Type: Spontaneous
  Country: IN (occurrence: None)
  Receive Date: 20140318
  Receipt Date: 20140318
  Transmission Date: 20141002
  Serious: Yes (Other)
  Sender: FDA-Public Use
  Company Number: 2014P1002042

PATIENT
  Age: 52 Year
  Sex: Male

DRUGS (1)
  1. CEFTRIAXONE [Suspect]
     Indication: PREOPERATIVE CARE
     Route: 042

REACTIONS (5)
  - Disseminated intravascular coagulation [None]
  - Swelling face [None]
  - Haematuria [None]
  - Epistaxis [None]
  - Haemolytic anaemia [None]
